FAERS Safety Report 8131305-9 (Version None)
Quarter: 2012Q1

REPORT INFORMATION
  Report Type: 
  Country: None (occurrence: None)
  Receive Date: 20120213
  Receipt Date: 20120207
  Transmission Date: 20120608
  Serious: Yes (Hospitalization, Other)
  Sender: FDA-Public Use
  Company Number: BR-US-EMD SERONO, INC.-7076864

PATIENT
  Sex: Female

DRUGS (4)
  1. ACETAMINOPHEN [Concomitant]
     Indication: PRODUCT USED FOR UNKNOWN INDICATION
  2. CLONAZEPAM [Concomitant]
     Indication: PRODUCT USED FOR UNKNOWN INDICATION
  3. REBIF [Suspect]
     Indication: RELAPSING-REMITTING MULTIPLE SCLEROSIS
     Dates: start: 20100923
  4. UNSPECIFIED MEDICATION [Concomitant]
     Indication: ANALGESIC THERAPY

REACTIONS (5)
  - JOINT LOCK [None]
  - FATIGUE [None]
  - CHILLS [None]
  - BENIGN OVARIAN TUMOUR [None]
  - DYSARTHRIA [None]
